FAERS Safety Report 18879956 (Version 1)
Quarter: 2021Q1

REPORT INFORMATION
  Report Type: Spontaneous
  Country: US (occurrence: US)
  Receive Date: 20210211
  Receipt Date: 20210211
  Transmission Date: 20210420
  Serious: Yes (Other)
  Sender: FDA-Public Use
  Company Number: US-PFIZER INC-2021092342

PATIENT
  Sex: Female

DRUGS (2)
  1. LETROZOLE. [Suspect]
     Active Substance: LETROZOLE
     Dosage: UNK
  2. IBRANCE [Suspect]
     Active Substance: PALBOCICLIB
     Dosage: 125 MG

REACTIONS (10)
  - Viral infection [Unknown]
  - White blood cell count decreased [Unknown]
  - Sinusitis [Unknown]
  - Red blood cell count decreased [Unknown]
  - Product packaging difficult to open [Unknown]
  - Asthenia [Unknown]
  - Thrombosis [Unknown]
  - Feeling abnormal [Unknown]
  - Cough [Unknown]
  - Fatigue [Unknown]
